FAERS Safety Report 4953751-4 (Version None)
Quarter: 2006Q1

REPORT INFORMATION
  Report Type: 
  Country: None (occurrence: None)
  Receive Date: 20060327
  Receipt Date: 20060315
  Transmission Date: 20060701
  Serious: Yes (Other)
  Sender: FDA-Public Use
  Company Number: US-JNJFOC-20060304283

PATIENT
  Sex: Male
  Weight: 68.04 kg

DRUGS (2)
  1. REMICADE [Suspect]
     Route: 042
  2. SORIATANE [Concomitant]

REACTIONS (3)
  - BREAST DISCOMFORT [None]
  - THYROID NEOPLASM [None]
  - THYROIDITIS [None]
